FAERS Safety Report 6988551-7 (Version None)
Quarter: 2010Q3

REPORT INFORMATION
  Report Type: 
  Country: None (occurrence: None)
  Receive Date: 20100916
  Receipt Date: 20100916
  Transmission Date: 20110219
  Serious: Yes (Hospitalization)
  Sender: FDA-Public Use
  Company Number: US-ELI_LILLY_AND_COMPANY-US201006001069

PATIENT
  Sex: Female

DRUGS (7)
  1. FORTEO [Suspect]
     Indication: OSTEOPOROSIS
     Dosage: 20 UG, DAILY (1/D)
     Dates: start: 20091001
  2. FLECAINIDE ACETATE [Concomitant]
  3. POTASSIUM [Concomitant]
     Dosage: 20 MG, 2/D
  4. NORVASC [Concomitant]
     Dosage: 5 MG, DAILY (1/D)
  5. VITAMIN TAB [Concomitant]
  6. ATIVAN [Concomitant]
     Dosage: 1 MG, AS NEEDED
  7. NEXIUM [Concomitant]

REACTIONS (6)
  - DISCOMFORT [None]
  - DYSGEUSIA [None]
  - HEADACHE [None]
  - HEART RATE IRREGULAR [None]
  - MALAISE [None]
  - OESOPHAGEAL INFECTION [None]
